FAERS Safety Report 4359569-8 (Version None)
Quarter: 2004Q2

REPORT INFORMATION
  Report Type: 
  Country: None (occurrence: None)
  Receive Date: 20040517
  Receipt Date: 20040517
  Transmission Date: 20050107
  Serious: No
  Sender: FDA-Public Use
  Company Number: None

PATIENT
  Sex: Male
  Weight: 82 kg

DRUGS (9)
  1. VIDEX EC [Suspect]
     Indication: HIV INFECTION
     Dosage: 400 MG QAM ORAL
     Route: 048
     Dates: start: 20030723, end: 20040211
  2. VIREAD [Suspect]
     Indication: HIV INFECTION
     Dosage: 300 MG QPM ORAL
     Route: 048
     Dates: start: 20030723, end: 20040211
  3. VICODIN [Concomitant]
  4. VISTARIL [Concomitant]
  5. ACIPHEX [Concomitant]
  6. PRINZIDE 12.5/20MG [Concomitant]
  7. DAPSONE [Concomitant]
  8. DIFLUCAN [Concomitant]
  9. AMPRENAVIR [Concomitant]

REACTIONS (1)
  - BLOOD LACTIC ACID INCREASED [None]
